FAERS Safety Report 17136728 (Version 2)
Quarter: 2020Q1

REPORT INFORMATION
  Report Type: Spontaneous
  Country: US (occurrence: US)
  Receive Date: 20191210
  Receipt Date: 20200115
  Transmission Date: 20200409
  Serious: Yes (Other)
  Sender: FDA-Public Use
  Company Number: US-JNJFOC-20191206974

PATIENT
  Sex: Male
  Weight: 60.84 kg

DRUGS (2)
  1. STELARA [Suspect]
     Active Substance: USTEKINUMAB
     Indication: CROHN^S DISEASE
     Route: 058
  2. HYDROCORTISONE ENEMA [Concomitant]

REACTIONS (6)
  - Product use issue [Unknown]
  - Surgery [Unknown]
  - Crohn^s disease [Unknown]
  - Product dose omission [Unknown]
  - Device malfunction [Unknown]
  - Off label use [Unknown]
